FAERS Safety Report 7476627-X (Version None)
Quarter: 2011Q2

REPORT INFORMATION
  Report Type: 
  Country: None (occurrence: None)
  Receive Date: 20110512
  Receipt Date: 20110510
  Transmission Date: 20111010
  Serious: No
  Sender: FDA-Public Use
  Company Number: US-TEVA-280971USA

PATIENT
  Sex: Female

DRUGS (3)
  1. FERROUS SULFATE TAB [Concomitant]
     Route: 048
  2. FERROUS SULFATE TAB [Concomitant]
     Route: 048
  3. AZILECT [Suspect]
     Indication: PARKINSON'S DISEASE
     Dosage: .5 MILLIGRAM;
     Route: 048
     Dates: start: 20100901

REACTIONS (1)
  - MYALGIA [None]
